FAERS Safety Report 12871901 (Version 1)
Quarter: 2016Q4

REPORT INFORMATION
  Report Type: Spontaneous
  Country: US (occurrence: US)
  Receive Date: 20161021
  Receipt Date: 20161021
  Transmission Date: 20170207
  Serious: No
  Sender: FDA-Public Use
  Company Number: US-PURDUE-USA-2016-0131827

PATIENT
  Age: 54 Year
  Sex: Male
  Weight: 81.63 kg

DRUGS (5)
  1. REMERON [Concomitant]
     Active Substance: MIRTAZAPINE
     Indication: INSOMNIA
     Dosage: (1/2) 15 MG, HS
     Route: 048
     Dates: start: 2015
  2. MS CONTIN [Suspect]
     Active Substance: MORPHINE SULFATE
     Indication: PAIN
     Dosage: 100 MG, TID
     Route: 048
     Dates: start: 201510
  3. MS CONTIN [Suspect]
     Active Substance: MORPHINE SULFATE
     Dosage: (2) 15 MG, TID
     Route: 048
     Dates: start: 201510
  4. OXYCONTIN [Suspect]
     Active Substance: OXYCODONE HYDROCHLORIDE
     Indication: PAIN
     Dosage: 80 MG, TID
     Route: 048
     Dates: start: 201508, end: 2015
  5. KADIAN [Concomitant]
     Active Substance: MORPHINE SULFATE
     Indication: PAIN
     Dosage: UNK
     Route: 048
     Dates: start: 2015

REACTIONS (7)
  - Skin ulcer [Unknown]
  - Weight increased [Unknown]
  - Rash [Unknown]
  - Skin mass [Not Recovered/Not Resolved]
  - Skin irritation [Not Recovered/Not Resolved]
  - Gynaecomastia [Not Recovered/Not Resolved]
  - Swelling [Unknown]

NARRATIVE: CASE EVENT DATE: 201508
